FAERS Safety Report 10053161 (Version 1)
Quarter: 2014Q2

REPORT INFORMATION
  Report Type: Spontaneous
  Country: GB (occurrence: GB)
  Receive Date: 20140402
  Receipt Date: 20140402
  Transmission Date: 20141212
  Serious: Yes (Death)
  Sender: FDA-Public Use
  Company Number: GB-GLAXOSMITHKLINE-B0981773A

PATIENT
  Sex: Male

DRUGS (2)
  1. ARZERRA [Suspect]
     Indication: CHRONIC LYMPHOCYTIC LEUKAEMIA
     Dosage: 300MG UNKNOWN
     Route: 042
  2. STEROIDS [Concomitant]

REACTIONS (3)
  - Death [Fatal]
  - Appendicitis [Fatal]
  - Infection [Fatal]
